FAERS Safety Report 8087552 (Version 2)
Quarter: 2012Q4

REPORT INFORMATION
  Report Type: 
  Country: QA (occurrence: QA)
  Receive Date: 20110812
  Receipt Date: 20120920
  Transmission Date: 20130627
  Serious: Yes (Death, Other)
  Sender: FDA-Public Use
  Company Number: QA-RANBAXY-2011R1-46760

PATIENT
  Age: 30 Year
  Sex: Male

DRUGS (1)
  1. OXCARBAZEPINE [Suspect]
     Indication: DYSKINESIA
     Dosage: 300 mg, bid
     Route: 048

REACTIONS (2)
  - Brugada syndrome [Fatal]
  - Ventricular fibrillation [Fatal]
